FAERS Safety Report 23432429 (Version 1)
Quarter: 2024Q1

REPORT INFORMATION
  Report Type: Spontaneous
  Country: NL (occurrence: NL)
  Receive Date: 20240123
  Receipt Date: 20240123
  Transmission Date: 20240409
  Serious: Yes (Other)
  Sender: FDA-Public Use
  Company Number: None

PATIENT
  Age: 42 Year
  Sex: Female
  Weight: 74 kg

DRUGS (2)
  1. IBUPROFEN [Suspect]
     Active Substance: IBUPROFEN
     Indication: Back pain
     Dosage: 400 MILLIGRAM, Q6H, 4 X DAILY 1 PIECE
     Route: 065
     Dates: start: 20240101
  2. ACETAMINOPHEN [Concomitant]
     Active Substance: ACETAMINOPHEN
     Dosage: 500 MILLIGRAM, BID, 2 X 500 MG TABLET.
     Route: 065

REACTIONS (3)
  - Palpitations [Recovering/Resolving]
  - Asthma [Recovering/Resolving]
  - Rash [Recovering/Resolving]
